FAERS Safety Report 18245169 (Version 8)
Quarter: 2021Q2

REPORT INFORMATION
  Report Type: Other
  Country: FR (occurrence: FR)
  Receive Date: 20200908
  Receipt Date: 20210611
  Transmission Date: 20210717
  Serious: Yes (Death, Hospitalization)
  Sender: FDA-Public Use
  Company Number: FR-ROCHE-2670079

PATIENT
  Age: 75 Year
  Sex: Male

DRUGS (70)
  1. DUPHALAC [Suspect]
     Active Substance: LACTULOSE
     Route: 048
     Dates: start: 20200713, end: 20200715
  2. DIAMOX SEQUELS [Suspect]
     Active Substance: ACETAZOLAMIDE
     Indication: PRODUCT USED FOR UNKNOWN INDICATION
     Route: 065
  3. PARACETAMOL [Suspect]
     Active Substance: ACETAMINOPHEN
     Indication: PYREXIA
     Dosage: AS REQUIRED
     Route: 042
     Dates: start: 20200719, end: 20200730
  4. METHYLPREDNISOLONE. [Suspect]
     Active Substance: METHYLPREDNISOLONE
     Route: 042
  5. NORADRENALINE [Suspect]
     Active Substance: NOREPINEPHRINE
     Indication: SEDATION
     Dosage: 0.8 MG/HR, CO
     Route: 042
     Dates: start: 20200709, end: 20200712
  6. URAPIDIL [Suspect]
     Active Substance: URAPIDIL
     Indication: HYPERTENSION
     Dosage: 5 MG/HR, CO
     Route: 042
     Dates: start: 20200709, end: 20200709
  7. SERESTA [Suspect]
     Active Substance: OXAZEPAM
     Route: 048
  8. IPRATROPIUM [Suspect]
     Active Substance: IPRATROPIUM
     Indication: INHALATION THERAPY
     Dosage: FREQUENCY: TID
     Route: 055
     Dates: start: 20200730, end: 20200803
  9. MORPHINE CHLORHYDRATE AGUETTANT [Suspect]
     Active Substance: MORPHINE HYDROCHLORIDE
     Indication: PRODUCT USED FOR UNKNOWN INDICATION
     Route: 065
  10. TEMESTA (LORAZEPAM) [Suspect]
     Active Substance: LORAZEPAM
     Route: 048
  11. MACROGOL [Suspect]
     Active Substance: POLYETHYLENE GLYCOLS
     Indication: CONSTIPATION
     Dosage: 2 SACHET, BID
     Route: 048
     Dates: start: 20200713, end: 20200715
  12. CATAPRESSAN [Suspect]
     Active Substance: CLONIDINE
     Indication: HYPERTENSION
     Route: 065
     Dates: start: 20200717, end: 20200717
  13. SERTRALINE [Suspect]
     Active Substance: SERTRALINE HYDROCHLORIDE
     Route: 048
  14. LANSOPRAZOLE. [Suspect]
     Active Substance: LANSOPRAZOLE
     Indication: GASTROINTESTINAL DISORDER PROPHYLAXIS
     Dosage: SINGLE
     Route: 048
     Dates: start: 20200710, end: 20200805
  15. SERESTA [Suspect]
     Active Substance: OXAZEPAM
     Indication: ANXIOLYTIC THERAPY
     Route: 048
     Dates: start: 20200802, end: 20200804
  16. ISUPREL [Suspect]
     Active Substance: ISOPROTERENOL HYDROCHLORIDE
     Indication: PRODUCT USED FOR UNKNOWN INDICATION
     Route: 065
     Dates: start: 20200711, end: 20200713
  17. NORADRENALINE [Suspect]
     Active Substance: NOREPINEPHRINE
     Route: 042
     Dates: start: 20200709, end: 20200712
  18. PIPERACILLINE / TAZOBACTAM [Suspect]
     Active Substance: PIPERACILLIN SODIUM\TAZOBACTAM SODIUM
     Route: 042
     Dates: start: 20200723, end: 20200730
  19. DIAZEPAM. [Suspect]
     Active Substance: DIAZEPAM
     Indication: PRODUCT USED FOR UNKNOWN INDICATION
     Route: 065
  20. CEFOTAXIME [Suspect]
     Active Substance: CEFOTAXIME SODIUM
     Route: 042
  21. SERESTA [Suspect]
     Active Substance: OXAZEPAM
     Route: 048
  22. PHOSPHONEUROS [Suspect]
     Active Substance: CALCIUM PHOSPHATE, DIBASIC, ANHYDROUS\MAGNESIUM GLYCEROPHOSPHATE\PHOSPHORIC ACID\SODIUM PHOSPHATE, DIBASIC
     Indication: PNEUMONIA
     Route: 065
     Dates: start: 20200708, end: 20200715
  23. IPRATROPIUM [Suspect]
     Active Substance: IPRATROPIUM
     Route: 055
  24. IPRATROPIUM [Suspect]
     Active Substance: IPRATROPIUM
     Route: 055
     Dates: start: 20200730, end: 20200803
  25. METHYLPREDNISOLONE. [Suspect]
     Active Substance: METHYLPREDNISOLONE
     Route: 042
  26. LORAZEPAM. [Suspect]
     Active Substance: LORAZEPAM
     Dosage: 10 MILLIGRAM
     Route: 048
  27. OXAZEPAM. [Suspect]
     Active Substance: OXAZEPAM
     Route: 048
  28. ATORVASTATINE [Concomitant]
     Active Substance: ATORVASTATIN
     Indication: PRODUCT USED FOR UNKNOWN INDICATION
     Dosage: UNK
     Route: 065
  29. SUFENTANIL [Suspect]
     Active Substance: SUFENTANIL
     Indication: SEDATION
     Dosage: 0.33UG/MIN, CO
     Route: 042
     Dates: start: 20200709, end: 20200717
  30. SUFENTANIL CITRATE. [Suspect]
     Active Substance: SUFENTANIL CITRATE
     Indication: GAIT DISTURBANCE
     Route: 042
     Dates: start: 20200709, end: 20200717
  31. SUFENTANIL CITRATE. [Suspect]
     Active Substance: SUFENTANIL CITRATE
     Indication: SEDATION
     Route: 065
  32. CEFOTAXIME [Suspect]
     Active Substance: CEFOTAXIME SODIUM
     Indication: PNEUMONIA
     Route: 042
     Dates: start: 20200708, end: 20200715
  33. DUPHALAC [Suspect]
     Active Substance: LACTULOSE
     Route: 048
  34. FUROSEMIDE. [Suspect]
     Active Substance: FUROSEMIDE
     Indication: PRODUCT USED FOR UNKNOWN INDICATION
     Route: 065
  35. NIMBEX [Suspect]
     Active Substance: CISATRACURIUM BESYLATE
     Indication: ENDOTRACHEAL INTUBATION
     Dosage: FREQUENCY: SINGLE
     Route: 042
     Dates: start: 20200715, end: 20200715
  36. LORAZEPAM. [Suspect]
     Active Substance: LORAZEPAM
     Indication: ANXIOLYTIC THERAPY
     Route: 048
     Dates: start: 20200726, end: 20200727
  37. TEMESTA (LORAZEPAM) [Suspect]
     Active Substance: LORAZEPAM
     Indication: ANXIOLYTIC THERAPY
     Route: 048
     Dates: start: 20200726, end: 20200727
  38. IMODIUM [Suspect]
     Active Substance: LOPERAMIDE HYDROCHLORIDE
     Indication: DIARRHOEA
     Dosage: SINGLE
     Route: 048
     Dates: start: 20200804, end: 20200804
  39. AMIODARONE [Concomitant]
     Active Substance: AMIODARONE
  40. HYDROXYCARBAMIDE [Concomitant]
     Active Substance: HYDROXYUREA
  41. ISOSORBIDE DINITRATE. [Suspect]
     Active Substance: ISOSORBIDE DINITRATE
     Indication: PRODUCT USED FOR UNKNOWN INDICATION
     Route: 065
     Dates: start: 20200714, end: 20200720
  42. MORPHINE SULFATE. [Suspect]
     Active Substance: MORPHINE SULFATE
     Indication: PRODUCT USED FOR UNKNOWN INDICATION
     Route: 065
  43. BENERVA [Suspect]
     Active Substance: THIAMINE HYDROCHLORIDE
     Indication: PRODUCT USED FOR UNKNOWN INDICATION
     Route: 065
  44. SERTRALINE [Suspect]
     Active Substance: SERTRALINE HYDROCHLORIDE
     Indication: DEPRESSION
     Route: 048
     Dates: start: 20200726, end: 20200810
  45. CEFOTAXIME [Suspect]
     Active Substance: CEFOTAXIME SODIUM
     Route: 042
  46. ROVAMYCINE [Suspect]
     Active Substance: SPIRAMYCIN
     Indication: PNEUMONIA
     Route: 042
     Dates: start: 20200708, end: 20200715
  47. PROPOFOL. [Suspect]
     Active Substance: PROPOFOL
     Indication: SEDATION
     Dosage: 150 MG/HR
     Route: 042
     Dates: start: 20200709, end: 20200720
  48. TEMESTA (LORAZEPAM) [Suspect]
     Active Substance: LORAZEPAM
     Route: 048
  49. OXAZEPAM. [Suspect]
     Active Substance: OXAZEPAM
     Indication: ANXIOLYTIC THERAPY
     Route: 048
  50. PIPERACILLINE / TAZOBACTAM [Suspect]
     Active Substance: PIPERACILLIN SODIUM\TAZOBACTAM SODIUM
     Indication: PNEUMONIA
     Route: 042
     Dates: start: 20200723, end: 20200730
  51. SERTRALINE [Suspect]
     Active Substance: SERTRALINE HYDROCHLORIDE
     Route: 048
  52. HYDROXYZINE [Suspect]
     Active Substance: HYDROXYZINE HYDROCHLORIDE
     Indication: PRODUCT USED FOR UNKNOWN INDICATION
     Route: 065
  53. DUPHALAC [Suspect]
     Active Substance: LACTULOSE
     Indication: CONSTIPATION
     Route: 048
     Dates: start: 20200713, end: 20200715
  54. TIORFAN [Suspect]
     Active Substance: RACECADOTRIL
     Indication: PRODUCT USED FOR UNKNOWN INDICATION
     Route: 065
     Dates: start: 20200727, end: 20200804
  55. LANSOPRAZOLE. [Suspect]
     Active Substance: LANSOPRAZOLE
     Route: 048
     Dates: start: 20200710, end: 20200805
  56. LANSOPRAZOLE. [Suspect]
     Active Substance: LANSOPRAZOLE
     Dosage: SINGLE
     Route: 048
     Dates: start: 20200210, end: 20200805
  57. NIMBEX [Suspect]
     Active Substance: CISATRACURIUM BESYLATE
     Indication: ENDOTRACHEAL INTUBATION
  58. REMIFENTANIL HCL [Suspect]
     Active Substance: REMIFENTANIL HYDROCHLORIDE
     Indication: SEDATION
     Dosage: DOSE: 0.1 MCG/KG/MIN
     Route: 042
     Dates: start: 20200720, end: 20200730
  59. AMIODARONE [Suspect]
     Active Substance: AMIODARONE
     Indication: ATRIAL FIBRILLATION
     Route: 042
     Dates: start: 20200725, end: 20200727
  60. METHYLPREDNISOLONE. [Suspect]
     Active Substance: METHYLPREDNISOLONE
     Indication: ACUTE RESPIRATORY DISTRESS SYNDROME
     Route: 042
     Dates: start: 20200708, end: 20200723
  61. LOVENOX [Suspect]
     Active Substance: ENOXAPARIN SODIUM
     Indication: PHLEBITIS
     Dosage: SINGLE
     Route: 058
     Dates: start: 20200708, end: 20200708
  62. KARDEGIC [Concomitant]
     Active Substance: ASPIRIN DL-LYSINE
     Indication: PRODUCT USED FOR UNKNOWN INDICATION
     Dosage: UNK
     Route: 065
  63. MIDAZOLAM. [Suspect]
     Active Substance: MIDAZOLAM
     Indication: SEDATION
     Dosage: 5 MG/HR
     Route: 042
     Dates: start: 20200709, end: 20200713
  64. CALCIUM GLUCONATE. [Suspect]
     Active Substance: CALCIUM GLUCONATE
     Indication: PRODUCT USED FOR UNKNOWN INDICATION
     Dosage: UNK
     Route: 065
  65. DIFFU?K [Suspect]
     Active Substance: POTASSIUM CHLORIDE
     Indication: PRODUCT USED FOR UNKNOWN INDICATION
     Route: 065
  66. GLUCONATE DE POTASSIUM [Suspect]
     Active Substance: POTASSIUM GLUCONATE
     Indication: PRODUCT USED FOR UNKNOWN INDICATION
     Route: 065
  67. LANSOPRAZOLE. [Suspect]
     Active Substance: LANSOPRAZOLE
     Route: 048
  68. METHYLPREDNISOLONE. [Suspect]
     Active Substance: METHYLPREDNISOLONE
     Route: 042
     Dates: start: 20200708, end: 20200723
  69. HUMALOG [Suspect]
     Active Substance: INSULIN LISPRO
     Indication: PRODUCT USED FOR UNKNOWN INDICATION
     Dosage: 1IU, CO
     Route: 042
     Dates: start: 20200709, end: 20200730
  70. PIPERACILLINE / TAZOBACTAM [Suspect]
     Active Substance: PIPERACILLIN SODIUM\TAZOBACTAM SODIUM
     Route: 042

REACTIONS (1)
  - Toxic epidermal necrolysis [Fatal]

NARRATIVE: CASE EVENT DATE: 20200809
